FAERS Safety Report 20745342 (Version 5)
Quarter: 2024Q4

REPORT INFORMATION
  Report Type: Spontaneous
  Country: DE (occurrence: DE)
  Receive Date: 20220425
  Receipt Date: 20241018
  Transmission Date: 20250114
  Serious: Yes (Life-Threatening, Hospitalization, Other)
  Sender: CELLTRION
  Company Number: DE-CELLTRION INC.-2022DE004871

PATIENT

DRUGS (18)
  1. TRASTUZUMAB [Suspect]
     Active Substance: TRASTUZUMAB
     Indication: Adenocarcinoma gastric
     Dosage: 4 MG/KG, UNKNOWN
     Route: 065
  2. TRASTUZUMAB [Suspect]
     Active Substance: TRASTUZUMAB
     Indication: Metastases to liver
     Dosage: 48 MG/KG, 12 CYCLE
  3. TRASTUZUMAB [Suspect]
     Active Substance: TRASTUZUMAB
     Indication: Adenocarcinoma gastric
  4. OXALIPLATIN [Suspect]
     Active Substance: OXALIPLATIN
     Indication: Metastases to liver
     Dosage: 85 MG/M2, 6 CYCLE / 85 MG/M2, CYCLIC (FOR 6 CYCLES)
     Route: 065
  5. OXALIPLATIN [Suspect]
     Active Substance: OXALIPLATIN
     Indication: Adenocarcinoma gastric
     Dosage: 1020 MG/M2, 6 CYCLE / 85 MG/M2 BIWEEKLY
  6. OXALIPLATIN [Suspect]
     Active Substance: OXALIPLATIN
     Indication: Adenocarcinoma gastric
     Dosage: 6 CYCLE/ DOSES WERE REDUCED TO 75%
  7. DOCETAXEL [Suspect]
     Active Substance: DOCETAXEL
     Indication: Adenocarcinoma gastric
     Dosage: 50 MG/M2, CYCLIC (FOR 0, 5 WEEK, 6 CYCLES)
     Route: 065
  8. DOCETAXEL [Suspect]
     Active Substance: DOCETAXEL
     Indication: Adenocarcinoma gastric
     Dosage: 6 CYCLE/ DOSES WERE REDUCED TO 75%
  9. DOCETAXEL [Suspect]
     Active Substance: DOCETAXEL
     Indication: Metastases to liver
     Dosage: 85 MG/M2 BIWEEKLY (6 CYCLE)
  10. LEUCOVORIN CALCIUM [Suspect]
     Active Substance: LEUCOVORIN CALCIUM
     Indication: Adenocarcinoma gastric
     Dosage: 200 MG/M2, CYCLIC (6CYCLES)
     Route: 065
  11. LEUCOVORIN CALCIUM [Suspect]
     Active Substance: LEUCOVORIN CALCIUM
     Indication: Metastases to liver
     Dosage: DOSES WERE REDUCED TO 75%
     Route: 065
  12. FLUOROURACIL [Suspect]
     Active Substance: FLUOROURACIL
     Indication: Metastases to liver
     Dosage: 6 CYCLE/ DOSES WERE REDUCED TO 75%
     Route: 042
  13. FLUOROURACIL [Suspect]
     Active Substance: FLUOROURACIL
     Indication: Adenocarcinoma gastric
     Dosage: 2,400 MG/M2 BIWEEKLY, ( 6 CYCLE)
     Route: 042
  14. FLUOROURACIL [Suspect]
     Active Substance: FLUOROURACIL
     Dosage: 2400 MG/M2, CYCLIC(FOR 24 HR. FOR 6 CYCLES)
     Route: 065
  15. LEUCOVORIN [Suspect]
     Active Substance: LEUCOVORIN\LEUCOVORIN CALCIUM
     Indication: Metastases to liver
     Dosage: 200 MG/M2 BIWEEKLY (6CYCLES)
  16. LEUCOVORIN [Suspect]
     Active Substance: LEUCOVORIN\LEUCOVORIN CALCIUM
     Indication: Adenocarcinoma gastric
     Dosage: 6 CYCLE/ DOSES WERE REDUCED TO 75%
  17. FLUOROURACIL [Suspect]
     Active Substance: FLUOROURACIL
     Indication: Adenocarcinoma gastric
     Dosage: 2400 MG/M2, CYCLIC (FOR 24 HR, FOR 6 CYCLE)
     Route: 065
  18. FILGRASTIM [Concomitant]
     Active Substance: FILGRASTIM
     Indication: Product used for unknown indication
     Dosage: ADMINISTERED ON DAYS 4-6
     Route: 058

REACTIONS (15)
  - Eczema [Unknown]
  - Skin reaction [Unknown]
  - Erythema [Unknown]
  - Ascites [Unknown]
  - Polyserositis [Recovered/Resolved]
  - Hepatic function abnormal [Recovering/Resolving]
  - Tumour lysis syndrome [Unknown]
  - Polyneuropathy [Not Recovered/Not Resolved]
  - Haematotoxicity [Unknown]
  - Onycholysis [Not Recovered/Not Resolved]
  - Onychoclasis [Not Recovered/Not Resolved]
  - Alopecia [Not Recovered/Not Resolved]
  - Paronychia [Unknown]
  - Erythema [Unknown]
  - Overdose [Unknown]
